APPROVED DRUG PRODUCT: OXYMORPHONE HYDROCHLORIDE
Active Ingredient: OXYMORPHONE HYDROCHLORIDE
Strength: 5MG
Dosage Form/Route: TABLET;ORAL
Application: A203601 | Product #001 | TE Code: AB
Applicant: AVANTHI INC
Approved: Jan 30, 2013 | RLD: No | RS: No | Type: RX